FAERS Safety Report 14351201 (Version 1)
Quarter: 2018Q1

REPORT INFORMATION
  Report Type: Spontaneous
  Country: US (occurrence: US)
  Receive Date: 20180104
  Receipt Date: 20180104
  Transmission Date: 20180509
  Serious: No
  Sender: FDA-Public Use
  Company Number: US-PFIZER INC-2018000371

PATIENT
  Age: 53 Year
  Sex: Female
  Weight: 108.86 kg

DRUGS (9)
  1. CHANTIX [Suspect]
     Active Substance: VARENICLINE TARTRATE
     Indication: SMOKING CESSATION THERAPY
     Dosage: 1 DF, UNK
     Dates: start: 2017
  2. NORCO [Concomitant]
     Active Substance: ACETAMINOPHEN\HYDROCODONE BITARTRATE
     Indication: MUSCULOSKELETAL DISCOMFORT
  3. CHANTIX [Suspect]
     Active Substance: VARENICLINE TARTRATE
     Dosage: 1 DF, 2X/DAY
     Dates: start: 2017
  4. NORCO [Concomitant]
     Active Substance: ACETAMINOPHEN\HYDROCODONE BITARTRATE
     Indication: MUSCULOSKELETAL DISCOMFORT
     Dosage: UNK, AS NEEDED, ^10MG TABLET UP TO 5 TIMES A DAY^
     Route: 048
  5. IRON [Concomitant]
     Active Substance: IRON
     Indication: ANAEMIA
     Dosage: UNK,  1X/DAY ^25 OR 50MG TABLET ONCE A DAY^
     Route: 048
  6. ASPIRIN. [Concomitant]
     Active Substance: ASPIRIN
     Indication: HEADACHE
     Dosage: 325 MG, 1X/DAY AT NIGHT
     Route: 048
     Dates: start: 2017
  7. SEROQUEL [Concomitant]
     Active Substance: QUETIAPINE FUMARATE
     Indication: INSOMNIA
     Dosage: 0.75 DF, 1X/DAY, ^200 MG TABLET ONCE AT NIGHT^
     Route: 048
     Dates: start: 2017
  8. DIAZEPAM. [Concomitant]
     Active Substance: DIAZEPAM
     Indication: LIMB DISCOMFORT
     Dosage: UNK, 2X/DAY ^20MG TABLET TWICE A DAY^
     Route: 048
  9. BURINEX [Concomitant]
     Active Substance: BUMETANIDE
     Indication: FLUID RETENTION
     Dosage: 2 MG, AS NEEDED
     Route: 048
     Dates: start: 2017

REACTIONS (2)
  - Vomiting [Not Recovered/Not Resolved]
  - Nausea [Not Recovered/Not Resolved]

NARRATIVE: CASE EVENT DATE: 2017
